FAERS Safety Report 22279464 (Version 3)
Quarter: 2023Q2

REPORT INFORMATION
  Report Type: Spontaneous
  Country: US (occurrence: US)
  Receive Date: 20230503
  Receipt Date: 20230605
  Transmission Date: 20230722
  Serious: Yes (Other)
  Sender: FDA-Public Use
  Company Number: US-PFIZER INC-PV202300077444

PATIENT
  Age: 32 Year
  Sex: Female

DRUGS (9)
  1. XELJANZ [Suspect]
     Active Substance: TOFACITINIB CITRATE
     Dosage: UNK
  2. KEVZARA [Suspect]
     Active Substance: SARILUMAB
     Indication: Rheumatoid arthritis
     Dosage: 200 MG, WEEKLY
     Route: 058
  3. KEVZARA [Suspect]
     Active Substance: SARILUMAB
     Dosage: 200MG, EVERY 2 WEEKS.
     Route: 058
  4. CIMZIA [Suspect]
     Active Substance: CERTOLIZUMAB PEGOL
     Dosage: UNK
  5. HUMIRA [Suspect]
     Active Substance: ADALIMUMAB
     Dosage: UNK
  6. RINVOQ [Suspect]
     Active Substance: UPADACITINIB
     Dosage: UNK
  7. VITAMIN D3 [Concomitant]
     Active Substance: CHOLECALCIFEROL
     Dosage: UNK
  8. METHOTREXATE [Concomitant]
     Active Substance: METHOTREXATE
     Dosage: UNK
  9. PREDNISONE [Concomitant]
     Active Substance: PREDNISONE
     Dosage: UNK

REACTIONS (3)
  - Rheumatoid arthritis [Unknown]
  - Flatulence [Recovered/Resolved]
  - Treatment failure [Unknown]
